FAERS Safety Report 15790313 (Version 1)
Quarter: 2019Q1

REPORT INFORMATION
  Report Type: Spontaneous
  Country: US (occurrence: US)
  Receive Date: 20190104
  Receipt Date: 20190104
  Transmission Date: 20190417
  Serious: No
  Sender: FDA-Public Use
  Company Number: US-UNITED THERAPEUTICS-UNT-2018-021648

PATIENT
  Age: 61 Year
  Sex: Female
  Weight: 67.12 kg

DRUGS (2)
  1. SILDENAFIL CITRATE. [Concomitant]
     Active Substance: SILDENAFIL CITRATE
     Indication: PRODUCT USED FOR UNKNOWN INDICATION
     Route: 065
  2. REMODULIN [Suspect]
     Active Substance: TREPROSTINIL
     Indication: PULMONARY ARTERIAL HYPERTENSION
     Dosage: 0.020 ?G/KG, CONTINUING
     Route: 058
     Dates: start: 20181210

REACTIONS (5)
  - Abdominal distension [Unknown]
  - Oedema [Unknown]
  - Oxygen saturation decreased [Unknown]
  - Swelling [Unknown]
  - Confusional state [Unknown]

NARRATIVE: CASE EVENT DATE: 201812
